FAERS Safety Report 21225087 (Version 1)
Quarter: 2022Q3

REPORT INFORMATION
  Report Type: Spontaneous
  Country: US (occurrence: US)
  Receive Date: 20220817
  Receipt Date: 20220817
  Transmission Date: 20221027
  Serious: No
  Sender: FDA-Public Use
  Company Number: US-OTSUKA-2022_033361

PATIENT
  Sex: Male
  Weight: 72.57 kg

DRUGS (1)
  1. ABILIFY MAINTENA [Suspect]
     Active Substance: ARIPIPRAZOLE
     Indication: Depression
     Dosage: 400 MG EVERY 4 WEEKS
     Route: 065
     Dates: start: 202008

REACTIONS (2)
  - Product storage error [Unknown]
  - Product use in unapproved indication [Unknown]
